FAERS Safety Report 18393838 (Version 1)
Quarter: 2020Q4

REPORT INFORMATION
  Report Type: Spontaneous
  Country: NZ (occurrence: NZ)
  Receive Date: 20201016
  Receipt Date: 20201016
  Transmission Date: 20210114
  Serious: Yes (Hospitalization)
  Sender: FDA-Public Use
  Company Number: NZ-ENDO PHARMACEUTICALS INC-2020-006723

PATIENT
  Age: 15 Year
  Sex: Male
  Weight: 49.2 kg

DRUGS (30)
  1. PREDNISONE. [Suspect]
     Active Substance: PREDNISONE
     Dosage: REDUCED  TO 10 MG, DAILY
     Route: 048
  2. SERETIDE [Suspect]
     Active Substance: FLUTICASONE PROPIONATE\SALMETEROL XINAFOATE
     Indication: PRODUCT USED FOR UNKNOWN INDICATION
     Dosage: 2 PUFFS INHALATIONAL TWICE DAILY (125MCG/25MCG) (TERTIARY HOSPITAL TRANSFER)
     Route: 050
  3. SALBUTAMOL [Concomitant]
     Active Substance: ALBUTEROL
     Indication: PRODUCT USED FOR UNKNOWN INDICATION
  4. SERETIDE [Suspect]
     Active Substance: FLUTICASONE PROPIONATE\SALMETEROL XINAFOATE
     Dosage: 2 PUFFS INHALATIONAL TWICE DAILY (125MCG/25MCG) FOLLOW UP
  5. FLIXONASE [Suspect]
     Active Substance: FLUTICASONE PROPIONATE
     Dosage: 1 SPRAY EACH NOSTRIL, BID (FOLLOW UP)
     Route: 050
  6. TOBRAMYCIN. [Concomitant]
     Active Substance: TOBRAMYCIN
     Indication: BRONCHOPULMONARY ASPERGILLOSIS ALLERGIC
  7. CREON [Concomitant]
     Active Substance: PANCRELIPASE AMYLASE\PANCRELIPASE LIPASE\PANCRELIPASE PROTEASE
     Indication: PRODUCT USED FOR UNKNOWN INDICATION
  8. PREDNISONE. [Suspect]
     Active Substance: PREDNISONE
     Indication: BRONCHOPULMONARY ASPERGILLOSIS ALLERGIC
     Dosage: 40 MG, DAILY
     Route: 048
  9. ZINC. [Concomitant]
     Active Substance: ZINC
     Indication: PRODUCT USED FOR UNKNOWN INDICATION
  10. ITRACONAZOLE. [Suspect]
     Active Substance: ITRACONAZOLE
     Indication: BRONCHOPULMONARY ASPERGILLOSIS ALLERGIC
     Dosage: 100 MG, DAILY (ABPA ADMISSION)
     Route: 048
  11. PREDNISONE. [Suspect]
     Active Substance: PREDNISONE
     Dosage: 20 MG, DAILY (HHS PRESENTATION)
     Route: 048
  12. INSULIN [Concomitant]
     Active Substance: INSULIN NOS
     Indication: CYSTIC FIBROSIS RELATED DIABETES
  13. TESTOSTERONE. [Concomitant]
     Active Substance: TESTOSTERONE
     Indication: PRODUCT USED FOR UNKNOWN INDICATION
  14. VITABDECK [Concomitant]
     Indication: PRODUCT USED FOR UNKNOWN INDICATION
  15. VITAMIN A                          /00056001/ [Concomitant]
     Active Substance: RETINOL
     Indication: PRODUCT USED FOR UNKNOWN INDICATION
  16. HYPERTONIC SALINE SOLUTION [Concomitant]
     Active Substance: SODIUM CHLORIDE
     Indication: PRODUCT USED FOR UNKNOWN INDICATION
  17. FLIXOTIDE [Suspect]
     Active Substance: FLUTICASONE PROPIONATE
     Indication: PRODUCT USED FOR UNKNOWN INDICATION
     Dosage: 125MCG, 2 PUFFS INHALATIONAL (ABPA ADMISSION) TWICE DAILY
     Route: 050
  18. FLIXONASE [Suspect]
     Active Substance: FLUTICASONE PROPIONATE
     Dosage: 1 SPRAY EACH NOSTRIL, BID (TERTIARY HOSPITAL TRANSFER)
     Route: 050
  19. ITRACONAZOLE. [Suspect]
     Active Substance: ITRACONAZOLE
     Dosage: 100 MG, DAILY (HHS PRESENTATION)
     Route: 048
  20. FLIXONASE [Suspect]
     Active Substance: FLUTICASONE PROPIONATE
     Dosage: 1 SPRAY EACH NOSTRIL, BID (HHS PRESENTATION)
     Route: 050
  21. CEFTAZIDIME. [Concomitant]
     Active Substance: CEFTAZIDIME
     Indication: BRONCHOPULMONARY ASPERGILLOSIS ALLERGIC
  22. VITAMIN K [Concomitant]
     Active Substance: PHYTONADIONE
     Indication: PRODUCT USED FOR UNKNOWN INDICATION
  23. ITRACONAZOLE. [Suspect]
     Active Substance: ITRACONAZOLE
     Dosage: 100 MG, DAILY (TERTIARY HOSPITAL TRANSFER)
     Route: 048
  24. PREDNISONE. [Suspect]
     Active Substance: PREDNISONE
     Dosage: 5 MG, DAILY (TERTIARY HOSPITAL TRANSFER)
     Route: 048
  25. FLIXOTIDE [Suspect]
     Active Substance: FLUTICASONE PROPIONATE
     Dosage: 125MCG, 2 PUFFS INHALATIONAL (HHS PRESENTATION) TWICE DAILY
     Route: 050
  26. FLIXONASE [Suspect]
     Active Substance: FLUTICASONE PROPIONATE
     Indication: PRODUCT USED FOR UNKNOWN INDICATION
     Dosage: 1 SPRAY EACH NOSTRIL, BID (ABPA ADMISSION)
     Route: 050
  27. ISOPHANE INSULIN [Concomitant]
     Active Substance: INSULIN NOS
     Indication: CYSTIC FIBROSIS RELATED DIABETES
     Dosage: UNK UNK, DAILY
  28. CETIRIZINE [Concomitant]
     Active Substance: CETIRIZINE HYDROCHLORIDE
     Indication: PRODUCT USED FOR UNKNOWN INDICATION
  29. FERROUS SULFATE. [Concomitant]
     Active Substance: FERROUS SULFATE
     Indication: PRODUCT USED FOR UNKNOWN INDICATION
     Dosage: UNK
  30. MACROGOL [Concomitant]
     Active Substance: POLYETHYLENE GLYCOLS
     Indication: PRODUCT USED FOR UNKNOWN INDICATION

REACTIONS (2)
  - Drug interaction [Recovering/Resolving]
  - Hyperglycaemic hyperosmolar nonketotic syndrome [Recovering/Resolving]
